FAERS Safety Report 4302760-7 (Version None)
Quarter: 2004Q1

REPORT INFORMATION
  Report Type: 
  Country: None (occurrence: None)
  Receive Date: 20040224
  Receipt Date: 20030430
  Transmission Date: 20041129
  Serious: No
  Sender: FDA-Public Use
  Company Number: US-BRISTOL-MYERS SQUIBB COMPANY-12261848

PATIENT
  Age: 53 Year
  Sex: Female
  Weight: 60 kg

DRUGS (4)
  1. KENALOG-10 [Suspect]
     Indication: NERVE COMPRESSION
     Route: 008
     Dates: start: 20030403
  2. LIDOCAINE [Suspect]
     Route: 008
     Dates: start: 20030403
  3. MARCAINE [Suspect]
     Route: 008
     Dates: start: 20030403
  4. DESAMETASONE [Suspect]
     Route: 008
     Dates: start: 20030403

REACTIONS (7)
  - ABASIA [None]
  - BRONCHITIS [None]
  - CHILLS [None]
  - INTERVERTEBRAL DISC PROTRUSION [None]
  - PAIN [None]
  - SINUSITIS [None]
  - TREMOR [None]
